FAERS Safety Report 11617119 (Version 2)
Quarter: 2015Q4

REPORT INFORMATION
  Report Type: Spontaneous
  Country: US (occurrence: US)
  Receive Date: 20151009
  Receipt Date: 20151201
  Transmission Date: 20160304
  Serious: No
  Sender: FDA-Public Use
  Company Number: US-LUNDBECK-DKLU2004008

PATIENT
  Age: 33 Year
  Sex: Female

DRUGS (3)
  1. NORTHERA [Suspect]
     Active Substance: DROXIDOPA
     Indication: AUTONOMIC NEUROPATHY
     Route: 048
     Dates: start: 20150514
  2. NORTHERA [Suspect]
     Active Substance: DROXIDOPA
     Route: 048
     Dates: start: 20150827, end: 20150907
  3. NORTHERA [Suspect]
     Active Substance: DROXIDOPA
     Route: 065
     Dates: end: 20151010

REACTIONS (8)
  - Chest pain [Unknown]
  - Hypotension [Unknown]
  - Drug ineffective [Unknown]
  - Presyncope [Unknown]
  - Blood pressure increased [Unknown]
  - Chest discomfort [Unknown]
  - Dizziness [Unknown]
  - Heart rate increased [Unknown]

NARRATIVE: CASE EVENT DATE: 20150908
